FAERS Safety Report 19561973 (Version 1)
Quarter: 2021Q3

REPORT INFORMATION
  Report Type: Spontaneous
  Country: US (occurrence: US)
  Receive Date: 20210714
  Receipt Date: 20210714
  Transmission Date: 20211014
  Serious: Yes (Other)
  Sender: FDA-Public Use
  Company Number: US-ENDO PHARMACEUTICALS INC-2021-004329

PATIENT
  Age: 50 Year
  Sex: Female

DRUGS (2)
  1. RANITIDINE. [Suspect]
     Active Substance: RANITIDINE
     Indication: ILLNESS
     Dosage: 150 MG, TID
     Route: 065
     Dates: start: 201106, end: 201911
  2. RANITIDINE HYDROCHLORIDE. [Suspect]
     Active Substance: RANITIDINE HYDROCHLORIDE
     Indication: ILLNESS
     Dosage: 150 MG, TID
     Route: 065
     Dates: start: 201106, end: 201911

REACTIONS (2)
  - Breast cancer stage I [Recovering/Resolving]
  - Gastric cancer stage II [Recovering/Resolving]

NARRATIVE: CASE EVENT DATE: 20120615
